FAERS Safety Report 8155844-X (Version None)
Quarter: 2012Q1

REPORT INFORMATION
  Report Type: 
  Country: None (occurrence: None)
  Receive Date: 20120222
  Receipt Date: 20120213
  Transmission Date: 20120608
  Serious: Yes (Other)
  Sender: FDA-Public Use
  Company Number: US-JNJFOC-20120207025

PATIENT
  Age: 3 Decade
  Sex: Female

DRUGS (3)
  1. CONCERTA [Suspect]
     Indication: ATTENTION DEFICIT/HYPERACTIVITY DISORDER
     Dosage: 54 MG/TAB/36MG/ONE TAB IN THE MORNING AND HALF TAB 4 HOURS LATER
     Route: 048
     Dates: start: 20111101
  2. ACETAZOLAMIDE [Concomitant]
     Indication: HYPERTENSION
     Route: 048
     Dates: start: 20110601, end: 20110101
  3. CONCERTA [Suspect]
     Dosage: 54 MG/TAB/36MG/ONE TAB IN THE MORNING AND HALF TAB 4 HOURS LATER
     Route: 048
     Dates: start: 20100101, end: 20110601

REACTIONS (3)
  - BLOOD PRESSURE INCREASED [None]
  - INTRACRANIAL PRESSURE INCREASED [None]
  - ALOPECIA [None]
